FAERS Safety Report 6462014-X (Version None)
Quarter: 2009Q4

REPORT INFORMATION
  Report Type: 
  Country: None (occurrence: None)
  Receive Date: 20091130
  Receipt Date: 20090819
  Transmission Date: 20100525
  Serious: Yes (Other)
  Sender: FDA-Public Use
  Company Number: PHHY2009DE17751

PATIENT
  Sex: Female

DRUGS (1)
  1. EXTAVIA [Suspect]
     Dosage: 250 UG, QOD
     Route: 058
     Dates: start: 20090304

REACTIONS (4)
  - DIARRHOEA [None]
  - HYPOAESTHESIA [None]
  - INTRA-ABDOMINAL HAEMATOMA [None]
  - NAUSEA [None]
